FAERS Safety Report 19097195 (Version 1)
Quarter: 2021Q2

REPORT INFORMATION
  Report Type: Spontaneous
  Country: US (occurrence: US)
  Receive Date: 20210406
  Receipt Date: 20210406
  Transmission Date: 20210717
  Serious: No
  Sender: FDA-Public Use
  Company Number: US-LANNETT COMPANY, INC.-US-2020LAN000191

PATIENT
  Age: 82 Year
  Sex: Female

DRUGS (1)
  1. DICYCLOMINE HYDROCHLORIDE (20MG) [Suspect]
     Active Substance: DICYCLOMINE HYDROCHLORIDE
     Indication: RECTAL DISCHARGE
     Dosage: 20 MG, BID
     Route: 048
     Dates: start: 202006, end: 202006

REACTIONS (3)
  - Abdominal distension [Recovered/Resolved]
  - Dizziness [Recovered/Resolved]
  - Feeling abnormal [Recovered/Resolved]

NARRATIVE: CASE EVENT DATE: 202006
